FAERS Safety Report 9948797 (Version 1)
Quarter: 2014Q1

REPORT INFORMATION
  Report Type: Spontaneous
  Country: US (occurrence: US)
  Receive Date: 20140304
  Receipt Date: 20140304
  Transmission Date: 20141002
  Serious: Yes (Hospitalization)
  Sender: FDA-Public Use
  Company Number: US-ROCHE-1353545

PATIENT
  Sex: Female

DRUGS (9)
  1. KLONOPIN [Suspect]
     Indication: CONVULSION
     Route: 048
  2. KLONOPIN [Suspect]
     Indication: PANIC ATTACK
  3. VALIUM [Suspect]
     Indication: PAIN
     Route: 065
  4. VALIUM [Suspect]
     Indication: CONVULSION
  5. NAPROSYN [Suspect]
     Indication: PRODUCT USED FOR UNKNOWN INDICATION
     Route: 065
  6. SYNTHROID [Concomitant]
     Route: 048
  7. BABY ASPIRIN [Concomitant]
     Route: 048
  8. TORADOL [Concomitant]
  9. DEMEROL [Concomitant]

REACTIONS (27)
  - Injury [Unknown]
  - Concussion [Unknown]
  - Brain injury [Unknown]
  - Haemorrhage [Unknown]
  - Malaise [Unknown]
  - Overdose [Unknown]
  - Convulsion [Unknown]
  - Cerebrovascular accident [Unknown]
  - Dizziness [Unknown]
  - Feeling abnormal [Unknown]
  - Haemoptysis [Unknown]
  - Dehydration [Unknown]
  - Blood pressure decreased [Unknown]
  - Abnormal behaviour [Unknown]
  - Osteoporosis [Unknown]
  - Blood potassium decreased [Unknown]
  - Hallucination [Unknown]
  - Urinary tract infection [Unknown]
  - Insomnia [Unknown]
  - Eye haemorrhage [Unknown]
  - Retching [Unknown]
  - Hypersensitivity [Unknown]
  - Tremor [Unknown]
  - Pain [Unknown]
  - Rash [Not Recovered/Not Resolved]
  - Fall [Unknown]
  - Dysarthria [Not Recovered/Not Resolved]
